FAERS Safety Report 19120014 (Version 2)
Quarter: 2021Q2

REPORT INFORMATION
  Report Type: Spontaneous
  Country: US (occurrence: US)
  Receive Date: 20210412
  Receipt Date: 20210420
  Transmission Date: 20210717
  Serious: Yes (Death)
  Sender: FDA-Public Use
  Company Number: US-LUNDBECK-DKLU3031303

PATIENT
  Age: 8 Year
  Sex: Female

DRUGS (2)
  1. SABRIL [Suspect]
     Active Substance: VIGABATRIN
     Indication: SEIZURE
     Route: 048
     Dates: start: 20160329
  2. ONFI [Concomitant]
     Active Substance: CLOBAZAM
     Indication: PRODUCT USED FOR UNKNOWN INDICATION
     Route: 048

REACTIONS (1)
  - Death [Fatal]
